FAERS Safety Report 8344319-0 (Version None)
Quarter: 2012Q2

REPORT INFORMATION
  Report Type: 
  Country: None (occurrence: None)
  Receive Date: 20120508
  Receipt Date: 20120502
  Transmission Date: 20120825
  Serious: Yes (Hospitalization, Congenital Anomaly, Other)
  Sender: FDA-Public Use
  Company Number: US-PFIZER INC-2011295959

PATIENT
  Sex: Male
  Weight: 1.1 kg

DRUGS (6)
  1. CALCIUM [Concomitant]
     Dosage: DAILY
     Route: 064
  2. ALBUTEROL [Concomitant]
     Route: 064
  3. ZOLOFT [Suspect]
     Dosage: 100 MG, UNK
     Route: 064
     Dates: start: 20030217, end: 20030419
  4. MULTI-VITAMINS [Concomitant]
     Dosage: DAILY
     Route: 064
     Dates: start: 20030101
  5. METROGEL [Concomitant]
     Dosage: UNK
     Route: 064
     Dates: start: 20040202
  6. ZOLOFT [Suspect]
     Indication: DEPRESSION
     Dosage: 100MG, 1/2 TABLET AT BED TIME
     Route: 064
     Dates: start: 20021217

REACTIONS (3)
  - GASTROSCHISIS [None]
  - FOETAL GROWTH RESTRICTION [None]
  - MATERNAL EXPOSURE TIMING UNSPECIFIED [None]
